FAERS Safety Report 7653723-5 (Version None)
Quarter: 2011Q3

REPORT INFORMATION
  Report Type: 
  Country: None (occurrence: None)
  Receive Date: 20110803
  Receipt Date: 20110714
  Transmission Date: 20111222
  Serious: Yes (Hospitalization)
  Sender: FDA-Public Use
  Company Number: US-GLAXOSMITHKLINE-A0869630A

PATIENT
  Age: 62 Year
  Sex: Male

DRUGS (1)
  1. AVANDIA [Suspect]
     Indication: DIABETES MELLITUS
     Dates: start: 20001025

REACTIONS (6)
  - MYOCARDIAL INFARCTION [None]
  - RENAL FAILURE [None]
  - NEUROPATHY PERIPHERAL [None]
  - RESPIRATORY FAILURE [None]
  - BLINDNESS [None]
  - CARDIAC FAILURE CONGESTIVE [None]
